FAERS Safety Report 12467454 (Version 1)
Quarter: 2016Q2

REPORT INFORMATION
  Report Type: Spontaneous
  Country: US (occurrence: US)
  Receive Date: 20160615
  Receipt Date: 20160615
  Transmission Date: 20160815
  Serious: No
  Sender: FDA-Public Use
  Company Number: US-TEVA-647950USA

PATIENT
  Age: 71 Year
  Sex: Female
  Weight: 88.53 kg

DRUGS (4)
  1. CIPROFLOXACIN. [Suspect]
     Active Substance: CIPROFLOXACIN
  2. RIFAMPIN. [Concomitant]
     Active Substance: RIFAMPIN
  3. CIPROFLOXACIN. [Suspect]
     Active Substance: CIPROFLOXACIN
     Indication: OSTEOMYELITIS
     Dates: start: 20160322, end: 20160328
  4. LEVAQUIN [Concomitant]
     Active Substance: LEVOFLOXACIN

REACTIONS (3)
  - Stomatitis [Unknown]
  - Face injury [Unknown]
  - Movement disorder [Unknown]

NARRATIVE: CASE EVENT DATE: 201603
